FAERS Safety Report 7402417-X (Version None)
Quarter: 2011Q2

REPORT INFORMATION
  Report Type: 
  Country: None (occurrence: None)
  Receive Date: 20110401
  Receipt Date: 20110328
  Transmission Date: 20111010
  Serious: Yes (Hospitalization, Disabling, Other)
  Sender: FDA-Public Use
  Company Number: 2009SP028658

PATIENT
  Age: 22 Year
  Sex: Female
  Weight: 65.7716 kg

DRUGS (3)
  1. NUVARING [Suspect]
     Indication: CONTRACEPTION
     Dates: start: 20021201, end: 20071101
  2. MULTI-VITAMIN [Concomitant]
  3. ACETAMINOPHEN [Concomitant]

REACTIONS (28)
  - HEADACHE [None]
  - CEREBRAL ARTERY THROMBOSIS [None]
  - BRAIN OEDEMA [None]
  - BRAIN HERNIATION [None]
  - SUBDURAL HYGROMA [None]
  - DIZZINESS [None]
  - HYPERTENSION [None]
  - CONVULSION [None]
  - HYPOPHAGIA [None]
  - IMPAIRED WORK ABILITY [None]
  - LIVER FUNCTION TEST ABNORMAL [None]
  - INJURY [None]
  - POST-TRAUMATIC STRESS DISORDER [None]
  - CEREBROVASCULAR ACCIDENT [None]
  - VICTIM OF SEXUAL ABUSE [None]
  - BONE DISORDER [None]
  - TRAUMATIC BRAIN INJURY [None]
  - PYREXIA [None]
  - CEREBRAL VENTRICLE DILATATION [None]
  - PNEUMONIA [None]
  - SUICIDAL IDEATION [None]
  - ADJUSTMENT DISORDER [None]
  - UNRESPONSIVE TO STIMULI [None]
  - MENTAL STATUS CHANGES [None]
  - RHABDOMYOLYSIS [None]
  - URINARY TRACT INFECTION [None]
  - DRUG EFFECT DECREASED [None]
  - FALL [None]
